FAERS Safety Report 21503518 (Version 2)
Quarter: 2023Q1

REPORT INFORMATION
  Report Type: Spontaneous
  Country: GB (occurrence: GB)
  Receive Date: 20221025
  Receipt Date: 20230105
  Transmission Date: 20230418
  Serious: Yes (Hospitalization, Other)
  Sender: FDA-Public Use
  Company Number: GB-MYLANLABS-2014SP001182

PATIENT
  Age: 60 Year
  Sex: Female
  Weight: 55.4 kg

DRUGS (26)
  1. CISPLATIN [Suspect]
     Active Substance: CISPLATIN
     Indication: Small cell lung cancer
     Dosage: 75 MILLIGRAM/SQ. METER
     Route: 042
     Dates: start: 20140114, end: 20140114
  2. CISPLATIN [Suspect]
     Active Substance: CISPLATIN
     Indication: Non-small cell lung cancer
     Dosage: 75 MILLIGRAM/SQ. METER
     Route: 042
     Dates: start: 20131224, end: 20131224
  3. CISPLATIN [Suspect]
     Active Substance: CISPLATIN
     Indication: Neoadjuvant therapy
     Dosage: 75 MILLIGRAM/SQ. METER
     Route: 042
     Dates: start: 20131203, end: 20131203
  4. CISPLATIN [Suspect]
     Active Substance: CISPLATIN
     Indication: Lung adenocarcinoma
     Dosage: 75 MILLIGRAM/SQ. METER, Q3W
     Route: 042
     Dates: start: 20140114
  5. PEMETREXED [Suspect]
     Active Substance: PEMETREXED
     Indication: Non-small cell lung cancer
     Dosage: 500 MILLIGRAM/SQ. METER,CYCLE
     Route: 042
     Dates: start: 20131203, end: 20131203
  6. PEMETREXED [Suspect]
     Active Substance: PEMETREXED
     Indication: Neoadjuvant therapy
     Dosage: 500 MILLIGRAM/SQ. METER,CYCLE
     Route: 042
     Dates: start: 20131224, end: 20131224
  7. PEMETREXED [Suspect]
     Active Substance: PEMETREXED
     Indication: Lung adenocarcinoma
     Dosage: 500 MILLIGRAM/SQ. METER, Q3W, CYCLICAL
     Route: 042
     Dates: start: 20140114, end: 20140114
  8. CYANOCOBALAMIN [Suspect]
     Active Substance: CYANOCOBALAMIN
     Indication: Non-small cell lung cancer
     Dosage: 1000 MICROGRAM, CYCLE
     Route: 030
     Dates: start: 20140114, end: 20140114
  9. CYANOCOBALAMIN [Suspect]
     Active Substance: CYANOCOBALAMIN
     Indication: Small cell lung cancer
     Dosage: 1000 MICROGRAM
     Route: 030
     Dates: start: 20140114, end: 20140114
  10. CYANOCOBALAMIN [Suspect]
     Active Substance: CYANOCOBALAMIN
     Dosage: UNK
     Route: 065
  11. HYDROXOCOBALAMIN HYDROCHLORIDE [Suspect]
     Active Substance: HYDROXOCOBALAMIN HYDROCHLORIDE
     Indication: Non-small cell lung cancer
     Dosage: 1000 MICROGRAM
     Route: 030
     Dates: start: 20140114, end: 20140114
  12. HYDROXOCOBALAMIN HYDROCHLORIDE [Suspect]
     Active Substance: HYDROXOCOBALAMIN HYDROCHLORIDE
     Dosage: UNK
     Route: 065
     Dates: start: 20131203, end: 20131203
  13. HYDROXOCOBALAMIN HYDROCHLORIDE [Suspect]
     Active Substance: HYDROXOCOBALAMIN HYDROCHLORIDE
     Dosage: UNK
     Route: 065
     Dates: start: 20131224
  14. PEMETREXED [Suspect]
     Active Substance: PEMETREXED
     Indication: Non-small cell lung cancer
     Dosage: 500 MILLIGRAM/SQ. METER(IV DRIP)
     Route: 065
     Dates: start: 20140114, end: 20140114
  15. PEMETREXED [Suspect]
     Active Substance: PEMETREXED
     Indication: Small cell lung cancer
     Dosage: 500 MILLIGRAM/SQ. METER, Q3W (IV DRIP)
     Route: 065
     Dates: start: 20140114, end: 20140114
  16. APREPITANT [Concomitant]
     Active Substance: APREPITANT
     Indication: Non-small cell lung cancer
     Dosage: 125 MILLIGRAM
     Route: 048
     Dates: start: 20131203
  17. APREPITANT [Concomitant]
     Active Substance: APREPITANT
     Dosage: UNK
     Route: 065
     Dates: start: 20131203
  18. CYCLIZINE [Concomitant]
     Active Substance: CYCLIZINE
     Indication: Non-small cell lung cancer
     Dosage: 50 MILLIGRAM
     Route: 048
     Dates: start: 20131203
  19. CYCLIZINE [Concomitant]
     Active Substance: CYCLIZINE
     Dosage: UNK
     Route: 065
     Dates: start: 20131203
  20. ONDANSETRON [Concomitant]
     Active Substance: ONDANSETRON
     Indication: Non-small cell lung cancer
     Dosage: 8 MILLIGRAM
     Route: 048
     Dates: start: 20131203
  21. ONDANSETRON [Concomitant]
     Active Substance: ONDANSETRON
     Dosage: UNK
     Route: 048
     Dates: start: 20131203
  22. DEXAMETHASONE [Concomitant]
     Active Substance: DEXAMETHASONE
     Indication: Non-small cell lung cancer
     Dosage: 4 MILLIGRAM, BID
     Route: 048
     Dates: start: 20131203
  23. DEXAMETHASONE [Concomitant]
     Active Substance: DEXAMETHASONE
     Dosage: 8 MILLIGRAM, QD
     Route: 065
  24. DEXAMETHASONE [Concomitant]
     Active Substance: DEXAMETHASONE
     Dosage: UNK
     Route: 065
     Dates: start: 20131203
  25. LEUCOVORIN [Concomitant]
     Active Substance: LEUCOVORIN
     Indication: Non-small cell lung cancer
     Dosage: 400 MICROGRAM, QD
     Route: 048
     Dates: start: 20131203
  26. LEUCOVORIN [Concomitant]
     Active Substance: LEUCOVORIN
     Dosage: UNK UNK, QD
     Route: 048
     Dates: start: 20131203

REACTIONS (7)
  - Capillary leak syndrome [Recovered/Resolved]
  - Swelling face [Recovered/Resolved]
  - Chest discomfort [Recovered/Resolved]
  - Peripheral swelling [Recovered/Resolved]
  - Rash [Recovered/Resolved]
  - Nausea [Recovered/Resolved]
  - Vomiting [Recovered/Resolved]

NARRATIVE: CASE EVENT DATE: 20131203
